FAERS Safety Report 11195076 (Version 1)
Quarter: 2015Q2

REPORT INFORMATION
  Report Type: Spontaneous
  Country: US (occurrence: US)
  Receive Date: 20150617
  Receipt Date: 20150617
  Transmission Date: 20150821
  Serious: Yes (Other)
  Sender: FDA-Public Use
  Company Number: US-ELI_LILLY_AND_COMPANY-US201506004176

PATIENT
  Sex: Male

DRUGS (1)
  1. CYMBALTA [Suspect]
     Active Substance: DULOXETINE HYDROCHLORIDE
     Indication: PRODUCT USED FOR UNKNOWN INDICATION
     Dosage: UNK, UNK

REACTIONS (25)
  - Drug withdrawal syndrome [Unknown]
  - Nausea [Unknown]
  - Influenza like illness [Unknown]
  - Sensory disturbance [Unknown]
  - Irritability [Unknown]
  - Confusional state [Unknown]
  - Vomiting [Unknown]
  - Muscle twitching [Unknown]
  - Memory impairment [Unknown]
  - Suicidal ideation [Unknown]
  - Tremor [Unknown]
  - Fatigue [Unknown]
  - Migraine [Unknown]
  - Nightmare [Unknown]
  - Anxiety [Unknown]
  - Dizziness [Unknown]
  - Disturbance in attention [Unknown]
  - Sleep disorder [Unknown]
  - Agitation [Unknown]
  - Hyperhidrosis [Unknown]
  - Cold sweat [Unknown]
  - Hallucination [Unknown]
  - Paraesthesia [Unknown]
  - Depression [Unknown]
  - Aggression [Unknown]
